FAERS Safety Report 23191444 (Version 5)
Quarter: 2023Q4

REPORT INFORMATION
  Report Type: Spontaneous
  Country: TR (occurrence: TR)
  Receive Date: 20231116
  Receipt Date: 20231214
  Transmission Date: 20240109
  Serious: Yes (Other)
  Sender: FDA-Public Use
  Company Number: TR-UCBSA-2023053843

PATIENT
  Age: 19 Year
  Sex: Female

DRUGS (3)
  1. LACOSAMIDE [Suspect]
     Active Substance: LACOSAMIDE
     Indication: Epilepsy
     Dosage: 50 MILLIGRAM, 2X/DAY (BID)
     Route: 048
     Dates: start: 20231031, end: 20231106
  2. LACOSAMIDE [Suspect]
     Active Substance: LACOSAMIDE
     Dosage: 100 MILLIGRAM, 2X/DAY (BID)
     Route: 048
     Dates: start: 20231107
  3. KEPPRA [Concomitant]
     Active Substance: LEVETIRACETAM
     Indication: Epilepsy
     Dosage: 500 MILLIGRAM (1X1.5) DAILY
     Route: 048

REACTIONS (11)
  - Epilepsy [Not Recovered/Not Resolved]
  - Loss of consciousness [Unknown]
  - Seizure [Not Recovered/Not Resolved]
  - Blister [Recovering/Resolving]
  - Pain in extremity [Not Recovered/Not Resolved]
  - Palpitations [Recovered/Resolved]
  - Vaginal discharge [Recovered/Resolved]
  - Head injury [Unknown]
  - Scar [Recovered/Resolved]
  - Inappropriate schedule of product administration [Unknown]
  - Social problem [Unknown]

NARRATIVE: CASE EVENT DATE: 20230101
